FAERS Safety Report 5027234-X (Version None)
Quarter: 2006Q2

REPORT INFORMATION
  Report Type: 
  Country: None (occurrence: None)
  Receive Date: 20060501
  Receipt Date: 20060111
  Transmission Date: 20061013
  Serious: No
  Sender: FDA-Public Use
  Company Number: 2006PV006986

PATIENT
  Age: 49 Year
  Sex: Female

DRUGS (12)
  1. SYMLIN [Suspect]
     Indication: DIABETES MELLITUS NON-INSULIN-DEPENDENT
     Dosage: SC
     Route: 058
  2. COUMADIN [Concomitant]
  3. DIGOXIN [Concomitant]
  4. STARLIX [Concomitant]
  5. LIPITOR [Concomitant]
  6. LISINOPRIL [Concomitant]
  7. ATENOLOL [Concomitant]
  8. HYDROCHLOROTHIAZIDE [Concomitant]
  9. LANTUS [Concomitant]
  10. COUMADIN [Concomitant]
  11. ZOCOR [Concomitant]
  12. TENORETIC 100 [Concomitant]

REACTIONS (1)
  - INTERNATIONAL NORMALISED RATIO INCREASED [None]
